FAERS Safety Report 24684884 (Version 1)
Quarter: 2024Q4

REPORT INFORMATION
  Report Type: Spontaneous
  Country: BE (occurrence: BE)
  Receive Date: 20241202
  Receipt Date: 20241202
  Transmission Date: 20250114
  Serious: Yes (Disabling)
  Sender: ROCHE
  Company Number: None

PATIENT
  Age: 65 Year
  Sex: Male
  Weight: 58 kg

DRUGS (2)
  1. TOCILIZUMAB [Suspect]
     Active Substance: TOCILIZUMAB
     Indication: Polymyalgia rheumatica
     Route: 058
     Dates: start: 20240412, end: 20241023
  2. ZOLPIDEM TEVA 10 MG [Concomitant]
     Dosage: EVENING

REACTIONS (5)
  - Anal erythema [Not Recovered/Not Resolved]
  - Genital erythema [Not Recovered/Not Resolved]
  - Pruritus genital [Not Recovered/Not Resolved]
  - Anal pruritus [Not Recovered/Not Resolved]
  - Social problem [Not Recovered/Not Resolved]

NARRATIVE: CASE EVENT DATE: 20240619
